FAERS Safety Report 8590832-0 (Version None)
Quarter: 2012Q3

REPORT INFORMATION
  Report Type: 
  Country: None (occurrence: None)
  Receive Date: 20120813
  Receipt Date: 20120803
  Transmission Date: 20120928
  Serious: Yes (Other)
  Sender: FDA-Public Use
  Company Number: US-ROCHE-1065000

PATIENT
  Sex: Male
  Weight: 104.42 kg

DRUGS (2)
  1. ACCUTANE [Suspect]
     Indication: ACNE
     Route: 065
     Dates: start: 20000302, end: 20000901
  2. TYLENOL [Concomitant]

REACTIONS (11)
  - SUICIDAL IDEATION [None]
  - CHEILITIS [None]
  - VISUAL IMPAIRMENT [None]
  - DEPRESSION [None]
  - GASTRIC ULCER [None]
  - GASTROINTESTINAL DISORDER [None]
  - BLOOD TRIGLYCERIDES INCREASED [None]
  - INFLAMMATORY BOWEL DISEASE [None]
  - IRRITABLE BOWEL SYNDROME [None]
  - DRY SKIN [None]
  - COLITIS ULCERATIVE [None]
